FAERS Safety Report 9853299 (Version 1)
Quarter: 2014Q1

REPORT INFORMATION
  Report Type: Spontaneous
  Country: IN (occurrence: None)
  Receive Date: 20140127
  Receipt Date: 20140127
  Transmission Date: 20141002
  Serious: No
  Sender: FDA-Public Use
  Company Number: ANTARES-2014-000004

PATIENT
  Age: 36 Year
  Sex: 0

DRUGS (3)
  1. METHOTREXATE (METHOTREXATE) [Suspect]
     Indication: PSORIASIS
     Dosage: 7.5-12.5 MG, ONCE/WK
  2. CYCLOSPORINE (CICLOSPORIN) [Suspect]
     Indication: PSORIASIS
     Dosage: 150-200 UNITS, 6 TIMES/WK
  3. FOLATE (FOLIC ACID) [Concomitant]

REACTIONS (3)
  - Depression [None]
  - Hyperuricaemia [None]
  - Hypertension [None]
